FAERS Safety Report 16978981 (Version 6)
Quarter: 2020Q4

REPORT INFORMATION
  Report Type: Spontaneous
  Country: US (occurrence: US)
  Receive Date: 20191031
  Receipt Date: 20201027
  Transmission Date: 20210113
  Serious: No
  Sender: FDA-Public Use
  Company Number: US-PFIZER INC-2019297000

PATIENT
  Age: 70 Year
  Sex: Male

DRUGS (1)
  1. IBRANCE [Suspect]
     Active Substance: PALBOCICLIB
     Indication: RETROPERITONEAL CANCER
     Dosage: 125 MG, DAILY (TAKE 1 CAPSULE (125 MG TOTAL) BY MOUTH DAILY)
     Route: 048

REACTIONS (10)
  - Off label use [Unknown]
  - Asthenia [Unknown]
  - Renal disorder [Unknown]
  - Insomnia [Unknown]
  - Fatigue [Unknown]
  - Hypersensitivity [Unknown]
  - Neoplasm progression [Unknown]
  - Sinus disorder [Unknown]
  - Malaise [Unknown]
  - Product use in unapproved indication [Unknown]
